FAERS Safety Report 17326858 (Version 1)
Quarter: 2020Q1

REPORT INFORMATION
  Report Type: Spontaneous
  Country: US (occurrence: US)
  Receive Date: 20200127
  Receipt Date: 20200127
  Transmission Date: 20200409
  Serious: No
  Sender: FDA-Public Use
  Company Number: US-ABBVIE-19K-163-3001016-00

PATIENT
  Sex: Female

DRUGS (1)
  1. LUPRON [Suspect]
     Active Substance: LEUPROLIDE ACETATE
     Indication: PRODUCT USED FOR UNKNOWN INDICATION
     Route: 065

REACTIONS (7)
  - Drug ineffective [Unknown]
  - Vomiting [Unknown]
  - Endometriosis [Unknown]
  - Nausea [Not Recovered/Not Resolved]
  - Pain [Unknown]
  - Hypophagia [Not Recovered/Not Resolved]
  - Muscle spasms [Unknown]
